FAERS Safety Report 7482086-3 (Version None)
Quarter: 2011Q2

REPORT INFORMATION
  Report Type: 
  Country: None (occurrence: None)
  Receive Date: 20110516
  Receipt Date: 20110510
  Transmission Date: 20111010
  Serious: Yes (Hospitalization)
  Sender: FDA-Public Use
  Company Number: GXKR2011DE01668

PATIENT
  Age: 56 Year
  Sex: Male
  Weight: 105 kg

DRUGS (15)
  1. BISOPROLOL FUMARATE [Concomitant]
     Indication: HYPERTENSION
     Dosage: 2.5 MG, BID
     Route: 048
     Dates: start: 19800101
  2. ALLOPURINOL [Concomitant]
     Indication: HYPERURICAEMIA
     Dosage: 100 MG, QD
     Route: 048
     Dates: start: 19900101
  3. SIMVASTATIN [Concomitant]
     Indication: DYSLIPIDAEMIA
     Dosage: UNK UKN, UNK
     Dates: start: 20000101, end: 20100608
  4. FOLIC ACID [Concomitant]
     Indication: FOLATE DEFICIENCY
     Dosage: UNK UKN, UNK
     Route: 048
     Dates: start: 19950101
  5. METFORMIN HCL [Concomitant]
     Dosage: UNK UKN, UNK
     Route: 048
     Dates: start: 20020101, end: 20100605
  6. DIPIDOLOR [Concomitant]
     Indication: PAIN
     Dosage: UNK UKN, UNK
     Route: 042
     Dates: start: 20100610, end: 20100610
  7. METHOTREXATE [Suspect]
     Indication: RHEUMATOID ARTHRITIS
     Dosage: 7.5 MG, QD
     Route: 048
     Dates: start: 19950101
  8. CELEBREX [Concomitant]
     Indication: PAIN
     Dosage: 100 MG, BID
     Route: 048
     Dates: start: 20100610
  9. FRAGMIN [Interacting]
     Indication: THROMBOSIS PROPHYLAXIS
     Dosage: 5000 IU, QD
     Route: 058
     Dates: start: 20100610, end: 20100625
  10. EMBOLEX [Interacting]
     Indication: THROMBOSIS PROPHYLAXIS
     Dosage: 8000 IU, QD
     Route: 058
     Dates: start: 20100602, end: 20100609
  11. RAMIPRIL [Concomitant]
     Indication: HYPERTENSION
     Dosage: UNK UKN, UNK
     Route: 048
     Dates: start: 19800101
  12. VOLTAREN RESINAT ^GEIGY^ [Concomitant]
     Indication: PAIN
     Dosage: 75 MG, QD
     Route: 048
     Dates: start: 20100620, end: 20100623
  13. FLUVASTATIN [Concomitant]
     Indication: DYSLIPIDAEMIA
     Dosage: UNK UKN, UNK
     Route: 048
     Dates: start: 20100609
  14. CYMBALTA [Interacting]
     Indication: DEPRESSION
     Dosage: 60 MG, QD
     Route: 048
     Dates: start: 20020101
  15. MIRTAZAPINE [Concomitant]
     Indication: DEPRESSION
     Dosage: 30 MG, QD
     Route: 048
     Dates: start: 20020101

REACTIONS (3)
  - HAEMATOMA [None]
  - IMPAIRED HEALING [None]
  - WOUND INFECTION [None]
